FAERS Safety Report 18649705 (Version 1)
Quarter: 2020Q4

REPORT INFORMATION
  Report Type: Spontaneous
  Country: PT (occurrence: PT)
  Receive Date: 20201222
  Receipt Date: 20201222
  Transmission Date: 20210114
  Serious: Yes (Other)
  Sender: FDA-Public Use
  Company Number: PT-TEVA-2020-PT-1859861

PATIENT
  Age: 79 Year
  Sex: Female

DRUGS (10)
  1. SUPRALIP 145 MG [Concomitant]
  2. ULCERMIN [Concomitant]
     Active Substance: SUCRALFATE
  3. CANDESARTAN. [Concomitant]
     Active Substance: CANDESARTAN
  4. VASTAREL LM [Concomitant]
  5. ATORVASTATIN [Concomitant]
     Active Substance: ATORVASTATIN
  6. ALPRAZOLAM. [Concomitant]
     Active Substance: ALPRAZOLAM
  7. CLOPIDOGREL [Suspect]
     Active Substance: CLOPIDOGREL BISULFATE
     Route: 048
  8. OMEPRAZOLE. [Concomitant]
     Active Substance: OMEPRAZOLE
  9. CARVEDILOL. [Concomitant]
     Active Substance: CARVEDILOL
  10. LASIX [Concomitant]
     Active Substance: FUROSEMIDE

REACTIONS (1)
  - Cardiac discomfort [Recovered/Resolved]
